FAERS Safety Report 11598475 (Version 1)
Quarter: 2015Q4

REPORT INFORMATION
  Report Type: Report from Study
  Country: US (occurrence: US)
  Receive Date: 20151006
  Receipt Date: 20151006
  Transmission Date: 20160304
  Serious: Yes (Other)
  Sender: FDA-Public Use
  Company Number: US-AMGEN-USASL2015102290

PATIENT
  Age: 63 Year
  Sex: Female

DRUGS (1)
  1. ENBREL [Suspect]
     Active Substance: ETANERCEPT
     Indication: PRODUCT USED FOR UNKNOWN INDICATION
     Dosage: 50 MG, QWK
     Route: 065

REACTIONS (6)
  - Psoriatic arthropathy [Unknown]
  - Weight increased [Unknown]
  - Shoulder operation [Recovered/Resolved]
  - Varicose vein [Unknown]
  - Psoriasis [Unknown]
  - Injection site pain [Unknown]

NARRATIVE: CASE EVENT DATE: 201509
